FAERS Safety Report 5261871-2 (Version None)
Quarter: 2007Q1

REPORT INFORMATION
  Report Type: 
  Country: None (occurrence: None)
  Receive Date: 20070310
  Receipt Date: 20070228
  Transmission Date: 20070707
  Serious: Yes (Disabling)
  Sender: FDA-Public Use
  Company Number: 2006UW26296

PATIENT
  Sex: Male
  Weight: 79.5 kg

DRUGS (6)
  1. SEROQUEL [Suspect]
     Indication: SCHIZOPHRENIA
     Route: 048
     Dates: start: 20020101
  2. SEROQUEL [Suspect]
     Indication: DEPRESSION
     Route: 048
     Dates: start: 20020101
  3. ABILIFY [Concomitant]
     Dates: start: 20020101
  4. RISPERDAL [Concomitant]
     Dates: start: 20010101
  5. LEXAPRO [Concomitant]
     Dates: start: 20030101
  6. METHADONE HCL [Concomitant]
     Dates: start: 19940101

REACTIONS (2)
  - DIABETES MELLITUS [None]
  - INJURY [None]
